FAERS Safety Report 24059918 (Version 1)
Quarter: 2024Q3

REPORT INFORMATION
  Report Type: Spontaneous
  Country: US (occurrence: None)
  Receive Date: 20240704
  Receipt Date: 20240704
  Transmission Date: 20241017
  Serious: Yes (Other)
  Sender: Public
  Company Number: None

PATIENT
  Age: 67 Year
  Sex: Female
  Weight: 73.8 kg

DRUGS (8)
  1. BENZONATATE [Suspect]
     Active Substance: BENZONATATE
     Indication: Cough
     Dosage: 1 CAPSULE 3 TIMES A DAY ORAL
     Route: 048
     Dates: start: 20240616, end: 20240616
  2. AMOXICILLIN [Suspect]
     Active Substance: AMOXICILLIN
  3. BP [Concomitant]
     Active Substance: CYCLOMETHICONE 5
  4. FAT EMULSION NOS [Concomitant]
     Active Substance: EGG PHOSPHOLIPIDS\SAFFLOWER OIL\SOYBEAN OIL
  5. Sleep Apnea device [Concomitant]
  6. VITAMINS [Concomitant]
     Active Substance: VITAMINS
  7. CALCIUM [Concomitant]
     Active Substance: CALCIUM
  8. D [Concomitant]

REACTIONS (4)
  - Pain [None]
  - Back pain [None]
  - Arthralgia [None]
  - Movement disorder [None]

NARRATIVE: CASE EVENT DATE: 20240616
